FAERS Safety Report 18517554 (Version 1)
Quarter: 2020Q4

REPORT INFORMATION
  Report Type: Spontaneous
  Country: DE (occurrence: DE)
  Receive Date: 20201118
  Receipt Date: 20201118
  Transmission Date: 20210114
  Serious: Yes (Hospitalization)
  Sender: FDA-Public Use
  Company Number: DE-TEVA-2020-DE-1848637

PATIENT
  Age: 51 Year
  Sex: Female

DRUGS (3)
  1. CARBAMAZEPIN [Suspect]
     Active Substance: CARBAMAZEPINE
     Dosage: 200 MG, 1-2-1-0
     Route: 048
  2. DIMETHYLFUMARAT [Concomitant]
     Dosage: 480 MILLIGRAM DAILY; 1-0-1-0
     Route: 048
  3. PANTOPRAZOL [Concomitant]
     Active Substance: PANTOPRAZOLE SODIUM
     Dosage: 20 MILLIGRAM DAILY; 1-0-0-0
     Route: 048

REACTIONS (4)
  - Facial pain [Unknown]
  - Musculoskeletal pain [Unknown]
  - Hypoaesthesia [Unknown]
  - Neuralgia [Unknown]
